FAERS Safety Report 24023037 (Version 8)
Quarter: 2024Q3

REPORT INFORMATION
  Report Type: Report from Study
  Country: CN (occurrence: CN)
  Receive Date: 20240627
  Receipt Date: 20240710
  Transmission Date: 20241017
  Serious: No
  Sender: ROCHE
  Company Number: CN-ROCHE-3075043

PATIENT
  Age: 66 Year
  Sex: Female
  Weight: 63.0 kg

DRUGS (43)
  1. ALECTINIB [Suspect]
     Active Substance: ALECTINIB
     Indication: Non-small cell lung cancer metastatic
     Route: 048
     Dates: start: 20211122
  2. ALECTINIB [Suspect]
     Active Substance: ALECTINIB
     Route: 048
     Dates: start: 20210313
  3. METOCLOPRAMIDE [Concomitant]
     Active Substance: METOCLOPRAMIDE
     Indication: Spinal osteoarthritis
     Route: 048
     Dates: start: 20211122
  4. POTASSIUM CHLORIDE [Concomitant]
     Active Substance: POTASSIUM CHLORIDE
     Indication: Hypokalaemia
     Route: 048
     Dates: start: 20220101, end: 20220219
  5. GLUTATHIONE [Concomitant]
     Active Substance: GLUTATHIONE
     Route: 042
     Dates: start: 20220417, end: 20220421
  6. GLUTATHIONE [Concomitant]
     Active Substance: GLUTATHIONE
     Route: 042
     Dates: start: 20220830, end: 20220901
  7. GLUTATHIONE [Concomitant]
     Active Substance: GLUTATHIONE
     Route: 042
     Dates: start: 20221030, end: 20221101
  8. HERBALS [Concomitant]
     Active Substance: HERBALS
     Route: 050
     Dates: start: 20220622, end: 20220624
  9. HERBALS [Concomitant]
     Active Substance: HERBALS
     Route: 050
     Dates: start: 20220829, end: 20220901
  10. HERBALS [Concomitant]
     Active Substance: HERBALS
     Route: 050
     Dates: start: 20230109, end: 20230111
  11. PAMIDRONATE DISODIUM AND GLUCOSE [Concomitant]
     Indication: Metastases to bone
     Route: 050
     Dates: start: 20220622, end: 20220623
  12. PAMIDRONATE DISODIUM AND GLUCOSE [Concomitant]
     Route: 050
     Dates: start: 20220829, end: 20220930
  13. PAMIDRONATE DISODIUM AND GLUCOSE [Concomitant]
     Route: 050
     Dates: start: 20221030, end: 20221101
  14. PAMIDRONATE DISODIUM AND GLUCOSE [Concomitant]
     Route: 042
     Dates: start: 20230108, end: 20230109
  15. MANNATIDE [Concomitant]
     Dosage: BOOST IMMUNITY
     Route: 050
     Dates: start: 20220622, end: 20220624
  16. MANNATIDE [Concomitant]
     Dosage: BOOST IMMUNITY
     Route: 050
     Dates: start: 20221030, end: 20221101
  17. MANNATIDE [Concomitant]
     Dosage: BOOST IMMUNITY
     Route: 050
     Dates: start: 20220829, end: 20220901
  18. MANNATIDE [Concomitant]
     Dosage: BOOST IMMUNITY
     Route: 050
     Dates: start: 20230109, end: 20230111
  19. INOSINE AND SODIUM CHLORIDE [Concomitant]
     Route: 050
     Dates: start: 20220415, end: 20220421
  20. HERBALS [Concomitant]
     Active Substance: HERBALS
     Dosage: MILK INJECTION
     Route: 050
     Dates: start: 20220415, end: 20220417
  21. GLUTATHIONE [Concomitant]
     Active Substance: GLUTATHIONE
     Dosage: POWDER NEEDLE
     Route: 050
     Dates: start: 20220417, end: 20220421
  22. GLUTATHIONE [Concomitant]
     Active Substance: GLUTATHIONE
     Dosage: POWDER NEEDLE
     Route: 050
     Dates: start: 20220830, end: 20220901
  23. GLUTATHIONE [Concomitant]
     Active Substance: GLUTATHIONE
     Dosage: POWDER NEEDLE
     Route: 050
     Dates: start: 20221030, end: 20221101
  24. GLUTATHIONE [Concomitant]
     Active Substance: GLUTATHIONE
     Dosage: POWDER NEEDLE
     Route: 050
     Dates: start: 20220417, end: 20220421
  25. MAGNESIUM ISOGLYCYRRHIZINATE [Concomitant]
     Active Substance: MAGNESIUM ISOGLYCYRRHIZINATE
     Route: 050
     Dates: start: 20220417, end: 20220421
  26. MAGNESIUM ISOGLYCYRRHIZINATE [Concomitant]
     Active Substance: MAGNESIUM ISOGLYCYRRHIZINATE
     Route: 042
     Dates: start: 20220212, end: 20220215
  27. GLYCYRRHIZIN [Concomitant]
     Active Substance: GLYCYRRHIZIN
     Dosage: ENTERIC CAPSULE
     Route: 048
     Dates: start: 20220219, end: 20220306
  28. BIFENDATE [Concomitant]
     Active Substance: BIFENDATE
     Route: 048
     Dates: start: 20220421, end: 20220525
  29. SILIBININ [Concomitant]
     Active Substance: SILIBININ
     Route: 048
     Dates: start: 20220421, end: 20220525
  30. MANNITOL [Concomitant]
     Active Substance: MANNITOL
     Route: 042
     Dates: start: 20220211, end: 20220212
  31. MANNITOL [Concomitant]
     Active Substance: MANNITOL
     Route: 042
     Dates: start: 20220212, end: 20220215
  32. ASPIRIN [Concomitant]
     Active Substance: ASPIRIN
     Route: 048
     Dates: start: 20220210, end: 20220219
  33. JADE SCREEN [Concomitant]
     Indication: Upper respiratory tract infection
     Route: 048
     Dates: start: 20211120, end: 20211122
  34. ESOMEPRAZOLE SODIUM [Concomitant]
     Active Substance: ESOMEPRAZOLE SODIUM
  35. DEXAMETHASONE SODIUM PHOSPHATE [Concomitant]
     Active Substance: DEXAMETHASONE PHOSPHATE\DEXAMETHASONE SODIUM PHOSPHATE
  36. CODEINE [Concomitant]
     Active Substance: CODEINE
  37. COMPOUND PLATYCODON [Concomitant]
  38. ZOLEDRONIC ACID [Concomitant]
     Active Substance: ZOLEDRONIC ACID
  39. PHOSPHOLIPID [Concomitant]
     Active Substance: PHOSPHOLIPID
  40. MOSAPRIDE CITRATE [Concomitant]
     Active Substance: MOSAPRIDE CITRATE
  41. MONTELUKAST SODIUM [Concomitant]
     Active Substance: MONTELUKAST SODIUM
  42. ATORVASTATIN CALCIUM [Concomitant]
     Active Substance: ATORVASTATIN CALCIUM
  43. RABEPRAZOLE [Concomitant]
     Active Substance: RABEPRAZOLE

REACTIONS (4)
  - Alanine aminotransferase increased [Recovered/Resolved]
  - Blood bilirubin increased [Recovered/Resolved]
  - Aspartate aminotransferase increased [Recovered/Resolved]
  - Hyperuricaemia [Recovered/Resolved]

NARRATIVE: CASE EVENT DATE: 20220211
